FAERS Safety Report 6136046-5 (Version None)
Quarter: 2009Q1

REPORT INFORMATION
  Report Type: 
  Country: None (occurrence: None)
  Receive Date: 20090325
  Receipt Date: 20090308
  Transmission Date: 20090719
  Serious: Yes (Hospitalization)
  Sender: FDA-Public Use
  Company Number: 2006S1004366

PATIENT
  Age: 71 Year
  Sex: Female
  Weight: 57.1532 kg

DRUGS (20)
  1. PHOSPHOSODA GINGER LEMON [Suspect]
     Indication: COLONOSCOPY
     Dosage: 180 ML;TOTAL;PO
     Route: 048
     Dates: start: 20040719, end: 20040720
  2. DULCOLAX [Concomitant]
  3. VERAPAMIL [Concomitant]
  4. LISINOPRIL [Concomitant]
  5. ZOCOR [Concomitant]
  6. HUMIBID [Concomitant]
  7. ALLEGRA [Concomitant]
  8. SINGULAIR [Concomitant]
  9. PRILOSEC [Concomitant]
  10. FOSAMAX [Concomitant]
  11. FLONASE [Concomitant]
  12. ASPIRIN [Concomitant]
  13. SEREVENT [Concomitant]
  14. IBUPROFEN [Concomitant]
  15. ALBUTEROL [Concomitant]
  16. VITAMIN E [Concomitant]
  17. MULTI-VITAMIN [Concomitant]
  18. FISH OIL [Concomitant]
  19. VITAMIN D [Concomitant]
  20. CALCIUM [Concomitant]

REACTIONS (12)
  - ANAEMIA [None]
  - HAEMODIALYSIS [None]
  - HYPERPHOSPHATAEMIA [None]
  - NEPHROCALCINOSIS [None]
  - PULMONARY OEDEMA [None]
  - RENAL CORTICAL NECROSIS [None]
  - RENAL FAILURE ACUTE [None]
  - RENAL FAILURE CHRONIC [None]
  - RENAL TRANSPLANT [None]
  - RENAL TUBULAR NECROSIS [None]
  - THROMBOCYTOPENIA [None]
  - URINARY TRACT INFECTION [None]
